FAERS Safety Report 12174299 (Version 1)
Quarter: 2016Q1

REPORT INFORMATION
  Report Type: Not Available
  Country: BR (occurrence: BR)
  Receive Date: 20160313
  Receipt Date: 20160313
  Transmission Date: 20160526
  Serious: Yes (Congenital Anomaly)
  Sender: FDA-Public Use
  Company Number: BR-ANIPHARMA-2016-BR-000004

PATIENT

DRUGS (1)
  1. FLUOXETINE HYDROCHLORIDE (NON-SPECIFIC) [Suspect]
     Active Substance: FLUOXETINE HYDROCHLORIDE
     Dosage: 60 MG DAILY
     Route: 015

REACTIONS (1)
  - Ductus arteriosus premature closure [Not Recovered/Not Resolved]
